FAERS Safety Report 23507852 (Version 1)
Quarter: 2024Q1

REPORT INFORMATION
  Report Type: Spontaneous
  Country: US (occurrence: None)
  Receive Date: 20240209
  Receipt Date: 20240209
  Transmission Date: 20240410
  Serious: Yes (Death, Hospitalization)
  Sender: FDA-Public Use
  Company Number: None

PATIENT
  Age: 7 Year
  Sex: Female
  Weight: 30.8 kg

DRUGS (2)
  1. METHOTREXATE [Suspect]
     Active Substance: METHOTREXATE
     Dates: end: 20220429
  2. VINCRISTINE SULFATE [Suspect]
     Active Substance: VINCRISTINE SULFATE
     Dates: end: 20220429

REACTIONS (13)
  - Pyrexia [None]
  - Coagulopathy [None]
  - Hepatic lesion [None]
  - Corneal lesion [None]
  - Hepatic failure [None]
  - Coagulopathy [None]
  - Acute kidney injury [None]
  - Respiratory failure [None]
  - Hypotension [None]
  - Cardiac arrest [None]
  - Catheter site haemorrhage [None]
  - Leukaemia recurrent [None]
  - Central nervous system lesion [None]

NARRATIVE: CASE EVENT DATE: 20200512
